FAERS Safety Report 6793749-7 (Version None)
Quarter: 2010Q2

REPORT INFORMATION
  Report Type: 
  Country: None (occurrence: None)
  Receive Date: 20100624
  Receipt Date: 20090227
  Transmission Date: 20101027
  Serious: No
  Sender: FDA-Public Use
  Company Number: US-PFIZER INC-2009158323

PATIENT
  Sex: Male

DRUGS (2)
  1. GENOTROPIN [Suspect]
     Indication: BODY HEIGHT BELOW NORMAL
     Dosage: 1.8 MG, UNK
     Route: 058
     Dates: start: 20090120
  2. IBUPROFEN [Concomitant]
     Dosage: 400 MG, UNK

REACTIONS (1)
  - HEADACHE [None]
